FAERS Safety Report 22049121 (Version 1)
Quarter: 2023Q1

REPORT INFORMATION
  Report Type: Spontaneous
  Country: US (occurrence: None)
  Receive Date: 20230228
  Receipt Date: 20230228
  Transmission Date: 20230418
  Serious: Yes (unspecified)
  Sender: FDA-Public Use
  Company Number: None

PATIENT
  Age: 72 Year
  Sex: Female
  Weight: 72.1 kg

DRUGS (1)
  1. ENOXAPARIN SODIUM [Suspect]
     Active Substance: ENOXAPARIN SODIUM
     Indication: Thrombosis prophylaxis
     Dosage: FREQUENCY : TWICE A DAY;?
     Route: 058
     Dates: start: 20230211, end: 20230225

REACTIONS (4)
  - Device connection issue [None]
  - Syringe issue [None]
  - Device malfunction [None]
  - Injection site mass [None]

NARRATIVE: CASE EVENT DATE: 20230215
